FAERS Safety Report 23178666 (Version 1)
Quarter: 2023Q4

REPORT INFORMATION
  Report Type: Report from Study
  Country: ES (occurrence: ES)
  Receive Date: 20231113
  Receipt Date: 20231113
  Transmission Date: 20240110
  Serious: Yes (Hospitalization, Other)
  Sender: FDA-Public Use
  Company Number: ES-JNJFOC-20231076301

PATIENT
  Age: 70 Year
  Sex: Female
  Weight: 100 kg

DRUGS (10)
  1. TALQUETAMAB [Suspect]
     Active Substance: TALQUETAMAB
     Indication: Plasma cell myeloma
     Dosage: 1ST DOSE
     Route: 065
     Dates: start: 20230605, end: 20230605
  2. TALQUETAMAB [Suspect]
     Active Substance: TALQUETAMAB
     Dosage: 2ND DOSE
     Route: 065
     Dates: start: 20230607, end: 20230607
  3. TALQUETAMAB [Suspect]
     Active Substance: TALQUETAMAB
     Dosage: 3RD DOSE
     Route: 065
     Dates: start: 20230613, end: 20230613
  4. ACENOCOUMAROL [Concomitant]
     Active Substance: ACENOCOUMAROL
     Indication: Pulmonary embolism
  5. DEXAMETHASONE [Concomitant]
     Active Substance: DEXAMETHASONE
     Indication: Premedication
  6. ACETAMINOPHEN [Concomitant]
     Active Substance: ACETAMINOPHEN
     Indication: Premedication
  7. POLARAMINE [Concomitant]
     Active Substance: DEXCHLORPHENIRAMINE MALEATE
     Indication: Premedication
  8. LEVOFLOXACIN [Concomitant]
     Active Substance: LEVOFLOXACIN
     Indication: Prophylaxis
  9. MICAFUNGIN [Concomitant]
     Active Substance: MICAFUNGIN SODIUM
     Indication: Prophylaxis
  10. LEVETIRACETAM [Concomitant]
     Active Substance: LEVETIRACETAM
     Indication: Prophylaxis

REACTIONS (6)
  - Cytokine release syndrome [Recovered/Resolved]
  - Immune effector cell-associated neurotoxicity syndrome [Recovered/Resolved]
  - Cytomegalovirus infection reactivation [Recovered/Resolved]
  - Thoracic vertebral fracture [Unknown]
  - COVID-19 [Unknown]
  - Sarcopenic obesity [Unknown]

NARRATIVE: CASE EVENT DATE: 20230608
